FAERS Safety Report 7371755-1 (Version None)
Quarter: 2011Q1

REPORT INFORMATION
  Report Type: 
  Country: None (occurrence: None)
  Receive Date: 20110324
  Receipt Date: 20110310
  Transmission Date: 20110831
  Serious: Yes (Other)
  Sender: FDA-Public Use
  Company Number: PHHY2011US20161

PATIENT
  Sex: Male

DRUGS (4)
  1. FOCALIN XR [Suspect]
     Dosage: 30 MG (1, 20MG IN THE MORNING AND 1, 10 MG IN THE AFTERNOON)
     Route: 048
  2. FOCALIN XR [Suspect]
     Dosage: 10 MG
     Route: 048
  3. FOCALIN XR [Suspect]
     Dosage: 15 MG
     Route: 048
  4. FOCALIN XR [Suspect]
     Dosage: 20 MG
     Route: 048

REACTIONS (1)
  - HYPERTENSION [None]
